FAERS Safety Report 25049261 (Version 6)
Quarter: 2025Q2

REPORT INFORMATION
  Report Type: Report from Study
  Country: KR (occurrence: KR)
  Receive Date: 20250307
  Receipt Date: 20250620
  Transmission Date: 20250716
  Serious: Yes (Hospitalization, Other)
  Sender: ALEXION PHARMACEUTICALS
  Company Number: KR-AstraZeneca-CH-00812425A

PATIENT
  Age: 67 Year

DRUGS (1)
  1. OSIMERTINIB [Suspect]
     Active Substance: OSIMERTINIB
     Dosage: 80 MILLIGRAM, QD

REACTIONS (30)
  - Dyspnoea [Not Recovered/Not Resolved]
  - Pulmonary oedema [Recovering/Resolving]
  - Fall [Not Recovered/Not Resolved]
  - Tendon discomfort [Not Recovered/Not Resolved]
  - Tendon pain [Not Recovered/Not Resolved]
  - Limb discomfort [Not Recovered/Not Resolved]
  - Hypoaesthesia [Not Recovered/Not Resolved]
  - Arthralgia [Not Recovered/Not Resolved]
  - Oedema peripheral [Recovered/Resolved]
  - Procedural pain [Not Recovered/Not Resolved]
  - Rhinorrhoea [Not Recovered/Not Resolved]
  - Muscular weakness [Not Recovered/Not Resolved]
  - Pain in extremity [Not Recovered/Not Resolved]
  - Pain in extremity [Recovered/Resolved]
  - Gait disturbance [Not Recovered/Not Resolved]
  - Abdominal pain [Recovered/Resolved]
  - Decreased appetite [Recovered/Resolved]
  - Headache [Recovered/Resolved]
  - Peripheral swelling [Recovered/Resolved]
  - Constipation [Recovered/Resolved]
  - Limb injury [Not Recovered/Not Resolved]
  - Wound [Not Recovered/Not Resolved]
  - Tooth fracture [Not Recovered/Not Resolved]
  - Gingival swelling [Not Recovered/Not Resolved]
  - Fall [Not Recovered/Not Resolved]
  - Insomnia [Not Recovered/Not Resolved]
  - Fatigue [Not Recovered/Not Resolved]
  - Intentional dose omission [Not Recovered/Not Resolved]
  - Oedema [Recovered/Resolved]
  - Gait disturbance [Not Recovered/Not Resolved]
